FAERS Safety Report 5008645-5 (Version None)
Quarter: 2006Q2

REPORT INFORMATION
  Report Type: 
  Country: None (occurrence: None)
  Receive Date: 20060523
  Receipt Date: 20060512
  Transmission Date: 20061013
  Serious: Yes (Other)
  Sender: FDA-Public Use
  Company Number: US-GLAXOSMITHKLINE-A0605585A

PATIENT
  Sex: Male
  Weight: 2.8 kg

DRUGS (2)
  1. TRIZIVIR [Suspect]
     Indication: HIV INFECTION
     Dosage: 1500MGD UNKNOWN
     Dates: start: 20050801, end: 20060201
  2. RETROVIR [Suspect]
     Indication: HIV INFECTION
     Dosage: 182MG THREE TIMES PER DAY
     Dates: start: 20051231, end: 20051231

REACTIONS (3)
  - DRUG EXPOSURE DURING PREGNANCY [None]
  - HYPERBILIRUBINAEMIA [None]
  - NEONATAL CHOLESTASIS [None]
